FAERS Safety Report 21805233 (Version 2)
Quarter: 2025Q3

REPORT INFORMATION
  Report Type: Spontaneous
  Country: EU (occurrence: EU)
  Receive Date: 20230102
  Receipt Date: 20250816
  Transmission Date: 20251021
  Serious: Yes (Death, Hospitalization, Congenital Anomaly, Other)
  Sender: AUROBINDO
  Company Number: EU-GLAXOSMITHKLINE-RO2022EME187237

PATIENT
  Sex: Male
  Weight: 3.32 kg

DRUGS (4)
  1. AMOXICILLIN\CLAVULANIC ACID [Suspect]
     Active Substance: AMOXICILLIN\CLAVULANIC ACID
     Indication: Urinary tract infection
     Route: 064
  2. CEFUROXIME [Suspect]
     Active Substance: CEFUROXIME
     Indication: Urinary tract infection
     Route: 064
  3. MEROPENEM [Concomitant]
     Active Substance: MEROPENEM
     Indication: Product used for unknown indication
     Route: 065
  4. AMIKACIN [Concomitant]
     Active Substance: AMIKACIN
     Indication: Product used for unknown indication
     Route: 065

REACTIONS (35)
  - Otospondylomegaepiphyseal dysplasia [Fatal]
  - Multiple congenital abnormalities [Fatal]
  - General physical health deterioration [Fatal]
  - Ear malformation [Unknown]
  - Congenital oral malformation [Unknown]
  - Cleft palate [Unknown]
  - Heart disease congenital [Unknown]
  - Micrognathia [Unknown]
  - Preauricular cyst [Unknown]
  - Facial asymmetry [Unknown]
  - Microglossia [Unknown]
  - Atrial septal defect [Unknown]
  - Anomaly of external ear congenital [Unknown]
  - External auditory canal atresia [Unknown]
  - Congenital skin dimples [Unknown]
  - Tethered oral tissue [Unknown]
  - Congenital pyelocaliectasis [Unknown]
  - Low set ears [Unknown]
  - Hypotonia neonatal [Unknown]
  - Tachypnoea [Unknown]
  - Neonatal hypoxia [Unknown]
  - Epilepsy [Unknown]
  - Bradycardia neonatal [Unknown]
  - Acute respiratory distress syndrome [Unknown]
  - Neonatal seizure [Unknown]
  - Dysphagia [Unknown]
  - Neonatal dyspnoea [Unknown]
  - Dyskinesia neonatal [Unknown]
  - Agitation neonatal [Unknown]
  - Wheezing [Unknown]
  - Periorbital fat herniation [Unknown]
  - Glossoptosis [Unknown]
  - Nodule [Unknown]
  - Use of accessory respiratory muscles [Unknown]
  - Foetal exposure during pregnancy [Unknown]
